FAERS Safety Report 4728203-7 (Version None)
Quarter: 2005Q3

REPORT INFORMATION
  Report Type: 
  Country: None (occurrence: None)
  Receive Date: 20050727
  Receipt Date: 20050606
  Transmission Date: 20060218
  Serious: Yes (Hospitalization)
  Sender: FDA-Public Use
  Company Number: 2005FR-00145

PATIENT
  Age: 69 Year
  Sex: Male

DRUGS (1)
  1. IBUPROFEN [Suspect]
     Indication: JOINT SPRAIN
     Dosage: 200 MG TDS ORAL
     Route: 048

REACTIONS (8)
  - ABDOMINAL DISTENSION [None]
  - HAEMATEMESIS [None]
  - HAEMOGLOBIN DECREASED [None]
  - HYPERHIDROSIS [None]
  - PAIN [None]
  - SHOCK [None]
  - VOMITING [None]
  - WHITE BLOOD CELL COUNT INCREASED [None]
